FAERS Safety Report 8650531 (Version 3)
Quarter: 2012Q4

REPORT INFORMATION
  Report Type: Report from Study
  Country: AU (occurrence: AU)
  Receive Date: 20120705
  Receipt Date: 20120927
  Transmission Date: 20130627
  Serious: Yes (Other)
  Sender: FDA-Public Use
  Company Number: AU-BRISTOL-MYERS SQUIBB COMPANY-16718538

PATIENT
  Age: 60 Year
  Sex: Female
  Weight: 75 kg

DRUGS (12)
  1. ORENCIA [Suspect]
     Indication: RHEUMATOID ARTHRITIS
     Dosage: recent dose:25May12
interr 26Jun12
Recent dose:125mg/week/IV/subcutaneous
     Route: 042
     Dates: start: 20101029
  2. ABATACEPT SUBQ INJECTION 125MG/ML [Suspect]
     Indication: RHEUMATOID ARTHRITIS
     Route: 058
  3. PREDNISOLONE [Concomitant]
     Route: 048
  4. CELEBREX [Concomitant]
     Route: 048
  5. METHOTREXATE [Concomitant]
     Route: 048
  6. LOSEC [Concomitant]
     Route: 048
  7. COVERSYL [Concomitant]
     Route: 048
  8. PROVERA [Concomitant]
     Route: 048
  9. SULINDAC [Concomitant]
     Route: 048
  10. FOLIC ACID [Concomitant]
  11. PARACETAMOL [Concomitant]
  12. IRON [Concomitant]

REACTIONS (3)
  - Transient ischaemic attack [Recovered/Resolved]
  - Dyspnoea [Recovered/Resolved]
  - Chest pain [Recovered/Resolved]
